FAERS Safety Report 10374613 (Version 1)
Quarter: 2014Q3

REPORT INFORMATION
  Report Type: Spontaneous
  Country: US (occurrence: None)
  Receive Date: 20140808
  Receipt Date: 20140808
  Transmission Date: 20150326
  Serious: Yes (Other)
  Sender: FDA-Public Use
  Company Number: None

PATIENT
  Age: 55 Year
  Sex: Male
  Weight: 86.18 kg

DRUGS (1)
  1. INDOMETHACIN. [Suspect]
     Active Substance: INDOMETHACIN
     Dosage: 2 PILLS THREE TIMES DAILY --

REACTIONS (5)
  - Dizziness [None]
  - Visual impairment [None]
  - Dysarthria [None]
  - Asthenia [None]
  - Gout [None]
